FAERS Safety Report 9418921 (Version 2)
Quarter: 2013Q3

REPORT INFORMATION
  Report Type: Report from Study
  Country: US (occurrence: US)
  Receive Date: 20130725
  Receipt Date: 20130730
  Transmission Date: 20140515
  Serious: Yes (Other)
  Sender: FDA-Public Use
  Company Number: US-BAYER-2013-086984

PATIENT
  Sex: Female

DRUGS (1)
  1. MIRENA [Suspect]
     Dosage: UNK
     Dates: start: 200906, end: 20100527

REACTIONS (3)
  - Abortion spontaneous [None]
  - Menstrual disorder [None]
  - Post procedural haemorrhage [Recovered/Resolved]
